FAERS Safety Report 7436679-X (Version None)
Quarter: 2011Q2

REPORT INFORMATION
  Report Type: 
  Country: None (occurrence: None)
  Receive Date: 20110426
  Receipt Date: 20110415
  Transmission Date: 20111010
  Serious: Yes (Hospitalization)
  Sender: FDA-Public Use
  Company Number: US-ELI_LILLY_AND_COMPANY-US201104004924

PATIENT
  Sex: Female
  Weight: 89.796 kg

DRUGS (9)
  1. GLIPIZIDE [Concomitant]
     Indication: TYPE 2 DIABETES MELLITUS
     Dosage: 2.5 MG, BID
     Route: 048
  2. DILTIAZEM [Concomitant]
     Indication: ATRIAL FIBRILLATION
     Dosage: 120 MG, QD
     Route: 048
  3. DIGOXIN [Concomitant]
     Indication: ATRIAL FIBRILLATION
     Dosage: 125 UG, QD
     Route: 048
  4. BYETTA [Suspect]
     Dosage: 10 UG, BID
     Route: 058
     Dates: start: 20110301
  5. BYETTA [Suspect]
     Indication: TYPE 2 DIABETES MELLITUS
     Dosage: 5 UG, BID
     Route: 058
     Dates: start: 20110201, end: 20110301
  6. WARFARIN [Concomitant]
     Indication: ATRIAL FIBRILLATION
     Dosage: 2.5 MG, 4/W
     Route: 048
  7. WARFARIN [Concomitant]
     Dosage: 1.25 MG, 3/W
     Route: 048
  8. LASIX [Concomitant]
     Indication: POLYURIA
     Dosage: 20 MG, QD
     Route: 048
  9. LASIX [Concomitant]
     Dosage: 20 MG, QOD
     Route: 048

REACTIONS (8)
  - OFF LABEL USE [None]
  - BLOOD GLUCOSE INCREASED [None]
  - BRONCHITIS [None]
  - FEELING JITTERY [None]
  - DRUG INEFFECTIVE [None]
  - GLYCOSYLATED HAEMOGLOBIN INCREASED [None]
  - WEIGHT DECREASED [None]
  - DECREASED APPETITE [None]
